FAERS Safety Report 12598135 (Version 1)
Quarter: 2016Q3

REPORT INFORMATION
  Report Type: Report from Study
  Country: US (occurrence: US)
  Receive Date: 20160727
  Receipt Date: 20160727
  Transmission Date: 20161109
  Serious: Yes (Death, Life-Threatening, Other)
  Sender: FDA-Public Use
  Company Number: US-ROCHE-794485

PATIENT
  Age: 68 Year
  Sex: Male
  Weight: 78 kg

DRUGS (3)
  1. CISPLATIN. [Suspect]
     Active Substance: CISPLATIN
     Indication: SMALL CELL LUNG CANCER
     Dosage: 75 MG /M2 OVER 60-120 IN ON DAY 1 OF CYCLE.
     Route: 042
     Dates: start: 20100630, end: 20101215
  2. VISMODEGIB [Suspect]
     Active Substance: VISMODEGIB
     Indication: SMALL CELL LUNG CANCER
     Dosage: EVERY MORNING., ON DATE, 30/JUN/2010 3150 MG, 21/JUL/2010 3150 MG, 11/AUG/2010- 4200 MG, 08/SEP/201
     Route: 048
     Dates: start: 20100630, end: 20101215
  3. ETOPOSIDE. [Suspect]
     Active Substance: ETOPOSIDE
     Indication: SMALL CELL LUNG CANCER
     Dosage: 100MG/M2/DAY OVER 60-120 MIN ON DAY 1-3.
     Route: 042
     Dates: start: 20100630, end: 20101215

REACTIONS (4)
  - Confusional state [Unknown]
  - White blood cell count decreased [Unknown]
  - Death [Fatal]
  - Respiratory failure [Unknown]

NARRATIVE: CASE EVENT DATE: 20101215
